FAERS Safety Report 4478424-6 (Version None)
Quarter: 2004Q4

REPORT INFORMATION
  Report Type: 
  Country: None (occurrence: None)
  Receive Date: 20041018
  Receipt Date: 20041018
  Transmission Date: 20050328
  Serious: Yes (Other)
  Sender: FDA-Public Use
  Company Number: None

PATIENT
  Age: 26 Year
  Sex: Female
  Weight: 79.3795 kg

DRUGS (2)
  1. PAXIL [Suspect]
     Indication: DEPRESSION
     Dosage: PPD ORAL
     Route: 048
     Dates: start: 20010315, end: 20010915
  2. PAXIL CR [Suspect]
     Indication: DEPRESSION
     Dosage: PPD ORAL
     Route: 048
     Dates: start: 20010916, end: 20020415

REACTIONS (12)
  - ABNORMAL BEHAVIOUR [None]
  - ARTHRALGIA [None]
  - CRYING [None]
  - DEPRESSION [None]
  - ECONOMIC PROBLEM [None]
  - FEAR [None]
  - FEELING ABNORMAL [None]
  - HYPERSOMNIA [None]
  - MANIA [None]
  - PAIN IN EXTREMITY [None]
  - SEXUAL ACTIVITY INCREASED [None]
  - SUICIDAL IDEATION [None]
